FAERS Safety Report 15705731 (Version 1)
Quarter: 2018Q4

REPORT INFORMATION
  Report Type: Other
  Country: CN (occurrence: CN)
  Receive Date: 20181210
  Receipt Date: 20181210
  Transmission Date: 20190205
  Serious: Yes (Other)
  Sender: FDA-Public Use
  Company Number: CN-ARALEZ PHARMACEUTICALS R+D INC.-2018-ARA-003150

PATIENT
  Sex: Male

DRUGS (1)
  1. METOPROLOL SUCCINATE. [Suspect]
     Active Substance: METOPROLOL SUCCINATE
     Indication: HYPERTENSION
     Dosage: 47.5 MG DAILY
     Route: 048
     Dates: start: 20180919, end: 20180926

REACTIONS (1)
  - Platelet count decreased [Unknown]
